FAERS Safety Report 18594244 (Version 3)
Quarter: 2021Q3

REPORT INFORMATION
  Report Type: Spontaneous
  Country: ES (occurrence: ES)
  Receive Date: 20201209
  Receipt Date: 20210911
  Transmission Date: 20211014
  Serious: No
  Sender: FDA-Public Use
  Company Number: ES-LUPIN PHARMACEUTICALS INC.-2020-09204

PATIENT
  Age: 43 Year
  Sex: Female

DRUGS (2)
  1. LEVETIRACETAM. [Suspect]
     Active Substance: LEVETIRACETAM
     Indication: PARTIAL SEIZURES
     Dosage: 1.5 GRAM, QD, INITIALLY THE DOSE WAS 1.5 G/24 H WHICH WAS INCREASED TO 2 G/24 H, INFUSION
     Route: 058
  2. LEVETIRACETAM. [Suspect]
     Active Substance: LEVETIRACETAM
     Dosage: 2 GRAM QD, 2 G/24H; INFUSION
     Route: 058

REACTIONS (1)
  - Off label use [Unknown]
